FAERS Safety Report 22380304 (Version 2)
Quarter: 2024Q1

REPORT INFORMATION
  Report Type: Spontaneous
  Country: CN (occurrence: CN)
  Receive Date: 20230529
  Receipt Date: 20240223
  Transmission Date: 20240410
  Serious: Yes (Other)
  Sender: FDA-Public Use
  Company Number: CN-PFIZER INC-PV202300093049

PATIENT
  Age: 11 Month
  Sex: Male

DRUGS (1)
  1. AZITHROMYCIN [Suspect]
     Active Substance: AZITHROMYCIN
     Indication: Drug therapy
     Dosage: 1 DF, 1X/DAY
     Route: 048
     Dates: start: 20230517, end: 20230518

REACTIONS (3)
  - Infantile vomiting [Recovering/Resolving]
  - Infantile diarrhoea [Recovering/Resolving]
  - Decreased appetite [Unknown]

NARRATIVE: CASE EVENT DATE: 20230518
